FAERS Safety Report 11122616 (Version 1)
Quarter: 2015Q2

REPORT INFORMATION
  Report Type: Spontaneous
  Country: US (occurrence: None)
  Receive Date: 20150518
  Receipt Date: 20150518
  Transmission Date: 20150821
  Serious: No
  Sender: FDA-Public Use
  Company Number: None

PATIENT
  Age: 33 Year
  Sex: Female
  Weight: 81.65 kg

DRUGS (1)
  1. NUVARING [Suspect]
     Active Substance: ETHINYL ESTRADIOL\ETONOGESTREL
     Indication: CONTRACEPTION
     Dosage: 1 RING EVERY 4WKS EVERY 4 WKS VAGINAL
     Route: 067
     Dates: start: 20150201, end: 20150517

REACTIONS (2)
  - Photosensitivity reaction [None]
  - Sunburn [None]

NARRATIVE: CASE EVENT DATE: 20150509
